FAERS Safety Report 5873696-5 (Version None)
Quarter: 2008Q3

REPORT INFORMATION
  Report Type: 
  Country: None (occurrence: None)
  Receive Date: 20080908
  Receipt Date: 20080902
  Transmission Date: 20090109
  Serious: Yes (Other)
  Sender: FDA-Public Use
  Company Number: B0535513A

PATIENT
  Age: 86 Year
  Sex: Female

DRUGS (6)
  1. LANOXIN [Suspect]
     Indication: AORTIC VALVE STENOSIS
     Dosage: .125MG PER DAY
     Route: 048
     Dates: start: 20050701
  2. BISOPROLOL FUMARATE [Concomitant]
     Indication: DRUG USE FOR UNKNOWN INDICATION
     Route: 048
     Dates: start: 20050701
  3. ACENOCOUMAROL [Concomitant]
     Indication: DRUG USE FOR UNKNOWN INDICATION
     Route: 048
  4. HYDROCHLOROTHIAZIDE [Concomitant]
     Route: 048
  5. LOPID [Concomitant]
     Route: 048
  6. MIXTARD HUMAN 70/30 [Concomitant]
     Dosage: 66IU PER DAY
     Route: 058

REACTIONS (4)
  - FEELING ABNORMAL [None]
  - HALLUCINATION [None]
  - MEMORY IMPAIRMENT [None]
  - SOMNOLENCE [None]
